FAERS Safety Report 23719287 (Version 1)
Quarter: 2024Q2

REPORT INFORMATION
  Report Type: Spontaneous
  Country: US (occurrence: US)
  Receive Date: 20240408
  Receipt Date: 20240408
  Transmission Date: 20240716
  Serious: No
  Sender: FDA-Public Use
  Company Number: US-Amarin Pharma  Inc-2024AMR000040

PATIENT
  Sex: Female

DRUGS (5)
  1. VASCEPA [Suspect]
     Active Substance: ICOSAPENT ETHYL
     Indication: Blood cholesterol
     Dosage: 3 GRAMS DAILY
     Route: 065
     Dates: start: 20240127
  2. VASCEPA [Suspect]
     Active Substance: ICOSAPENT ETHYL
     Dosage: 2 GRAMS DAILY
     Route: 065
     Dates: start: 20240128
  3. VASCEPA [Suspect]
     Active Substance: ICOSAPENT ETHYL
     Dosage: 1 GRAM DAILY
     Route: 065
     Dates: start: 20240129
  4. VASCEPA [Suspect]
     Active Substance: ICOSAPENT ETHYL
     Route: 065
     Dates: end: 202401
  5. ATENOLOL [Concomitant]
     Active Substance: ATENOLOL

REACTIONS (2)
  - Product dose omission issue [Unknown]
  - Intentional product misuse [Unknown]
